FAERS Safety Report 10199497 (Version 3)
Quarter: 2014Q2

REPORT INFORMATION
  Report Type: Spontaneous
  Country: US (occurrence: US)
  Receive Date: 20140527
  Receipt Date: 20140618
  Transmission Date: 20141212
  Serious: Yes (Hospitalization)
  Sender: FDA-Public Use
  Company Number: US-BAXTER-2014BAX022936

PATIENT
  Sex: Female

DRUGS (1)
  1. DIANEAL LOW CALCIUM [Suspect]
     Indication: PERITONEAL DIALYSIS
     Route: 033

REACTIONS (5)
  - Peritoneal dialysis complication [Unknown]
  - Abdominal hernia [Not Recovered/Not Resolved]
  - Disease complication [Not Recovered/Not Resolved]
  - Muscular weakness [Unknown]
  - Impaired healing [Not Recovered/Not Resolved]
